FAERS Safety Report 6256076-2 (Version None)
Quarter: 2009Q2

REPORT INFORMATION
  Report Type: 
  Country: None (occurrence: None)
  Receive Date: 20090630
  Receipt Date: 20090630
  Transmission Date: 20091009
  Serious: Yes (Other)
  Sender: FDA-Public Use
  Company Number: None

PATIENT
  Age: 52 Year
  Sex: Female
  Weight: 72.7 kg

DRUGS (1)
  1. ZICAM GEL SWABS [Suspect]
     Indication: NASOPHARYNGITIS
     Dates: start: 20080101, end: 20090101

REACTIONS (2)
  - AGEUSIA [None]
  - ANOSMIA [None]
